FAERS Safety Report 7463055-6 (Version None)
Quarter: 2011Q2

REPORT INFORMATION
  Report Type: 
  Country: None (occurrence: None)
  Receive Date: 20110506
  Receipt Date: 20100203
  Transmission Date: 20111010
  Serious: No
  Sender: FDA-Public Use
  Company Number: US-BAYER-201013754NA

PATIENT
  Age: 36 Year
  Sex: Female
  Weight: 68.027 kg

DRUGS (3)
  1. NEXIUM [Concomitant]
  2. MIRENA [Suspect]
     Indication: CONTRACEPTION
     Dosage: 20 ?G/D, CONT
     Route: 015
     Dates: start: 20080401
  3. MECLIZINE [Concomitant]
     Indication: DIZZINESS

REACTIONS (3)
  - POST PROCEDURAL HAEMORRHAGE [None]
  - AMENORRHOEA [None]
  - COITAL BLEEDING [None]
